FAERS Safety Report 6258669-5 (Version None)
Quarter: 2009Q3

REPORT INFORMATION
  Report Type: 
  Country: None (occurrence: None)
  Receive Date: 20090707
  Receipt Date: 20090626
  Transmission Date: 20100115
  Serious: Yes (Other)
  Sender: FDA-Public Use
  Company Number: US-TYCO HEALTHCARE/MALLINCKRODT-T200801574

PATIENT

DRUGS (38)
  1. OPTIMARK [Suspect]
     Indication: ANGIOGRAM
     Dosage: 40 ML (CC), UNK
     Route: 042
     Dates: start: 20040205, end: 20040205
  2. OMNISCAN [Suspect]
     Indication: FISTULOGRAM
     Dosage: 35 ML (CC), SINGLE
     Route: 042
     Dates: start: 20051006, end: 20051006
  3. OMNISCAN [Suspect]
     Indication: ARTERIOGRAM
     Dosage: 90 ML (CC), SINGLE
     Route: 042
     Dates: start: 20060105, end: 20060105
  4. CENTRUM SILVER                     /01292501/ [Concomitant]
     Indication: SUPPLEMENTATION THERAPY
     Dosage: UNK
     Dates: start: 20060101
  5. VITAMIN A [Concomitant]
     Dosage: 1.25 MG, PER MONTH
     Dates: start: 20070101
  6. SULFA                              /00150702/ [Concomitant]
     Indication: INFECTION PROPHYLAXIS
     Dates: start: 20060101
  7. HYDROCHLOROTHIAZIDE [Concomitant]
     Indication: ANTIINFLAMMATORY THERAPY
     Dosage: 12.5 MG, QD
     Dates: start: 20060101
  8. HYDROCHLOROTHIAZIDE [Concomitant]
     Dosage: 25 MG, QD
  9. ACTOS [Concomitant]
     Indication: DIABETES MELLITUS
     Dosage: 15 MG, QD
     Dates: start: 20060101
  10. ACTOS [Concomitant]
     Dosage: 30 MG, QD
  11. AMITRIPTYLINE [Concomitant]
     Indication: SLEEP DISORDER
     Dosage: 25 MG, QD (QHS)
     Dates: start: 20040101
  12. CELLCEPT [Concomitant]
     Indication: PROPHYLAXIS AGAINST TRANSPLANT REJECTION
     Dosage: 250 MG, QID
     Dates: start: 20060101
  13. CELLCEPT [Concomitant]
     Dosage: 500 MG, BID
  14. PROGRAF [Concomitant]
     Indication: PROPHYLAXIS AGAINST TRANSPLANT REJECTION
     Dosage: .5 MG, BID
     Dates: start: 20060101
  15. PROGRAF [Concomitant]
     Dosage: 1 MG, BID
  16. PLETAL [Concomitant]
     Indication: ANGIOPATHY
     Dosage: 50 MG, BID
     Dates: start: 20040101
  17. HUMALOG [Concomitant]
     Indication: DIABETES MELLITUS
     Dosage: 5 IU, TID
     Dates: start: 20060101
  18. HUMALOG [Concomitant]
     Dosage: 5 IU, BID, PRN
  19. LANTUS [Concomitant]
     Indication: DIABETES MELLITUS
     Dosage: 40 IU, QD (QHS)
     Dates: start: 20060101
  20. PLAVIX [Concomitant]
     Indication: ARTERIAL DISORDER
     Dosage: 75 MG, QD
     Dates: start: 20050101
  21. PREDNISONE [Concomitant]
     Indication: PROPHYLAXIS AGAINST TRANSPLANT REJECTION
     Dosage: 5 MG, QD
     Dates: start: 20060101
  22. SODIUM BICARBONATE [Concomitant]
     Indication: GASTROOESOPHAGEAL REFLUX DISEASE
     Dosage: 650 MG, BID
     Dates: start: 20050101
  23. SULFAMETHOXAZOLE AND TRIMETHOPRIM [Concomitant]
     Indication: PROPHYLAXIS AGAINST TRANSPLANT REJECTION
     Dosage: ONE, QD
     Dates: start: 20060101
  24. PHOSPHORUS [Concomitant]
     Indication: BLOOD PHOSPHORUS DECREASED
     Dosage: 250 MG, QD
     Dates: start: 20040101
  25. VYTORIN [Concomitant]
     Indication: BLOOD CHOLESTEROL INCREASED
     Dosage: 10/40, QD
     Dates: start: 20030101
  26. ATROPINE W/DIPHENOXYLATE           /00034001/ [Concomitant]
     Indication: DIARRHOEA
     Dosage: UNK, PRN
     Dates: start: 20060101
  27. PROMETHAZINE [Concomitant]
     Indication: NAUSEA
     Dosage: UNK, PRN
     Dates: start: 20060101
  28. PROPOXYPHENE NAPSYLATE W/PARACETAMOL [Concomitant]
     Indication: PAIN
     Dosage: UNK, PRN
     Dates: start: 20060101
  29. ASPIRIN [Concomitant]
     Indication: ANTIPLATELET THERAPY
     Dosage: 81 MG, QD
  30. METOPROLOL [Concomitant]
     Dosage: 50 MG, QD
  31. MAG-OX [Concomitant]
     Dosage: 400 MG, QD
  32. NEURONTIN [Concomitant]
     Dosage: 300 MG, BID
  33. ACYCLOVIR [Concomitant]
     Dosage: 400 MG, BID
  34. DOCUSATE [Concomitant]
     Dosage: UNK
  35. NEXIUM [Concomitant]
     Dosage: 40 MG, QD
  36. ZINC [Concomitant]
     Dosage: 50 MG, QD
  37. INSULIN [Concomitant]
     Dosage: SLIDING SCALE
  38. DARVOCET                           /00220901/ [Concomitant]
     Dosage: UNK

REACTIONS (3)
  - DRUG PRESCRIBING ERROR [None]
  - NEPHROGENIC SYSTEMIC FIBROSIS [None]
  - OFF LABEL USE [None]
